FAERS Safety Report 4590835-7 (Version None)
Quarter: 2005Q1

REPORT INFORMATION
  Report Type: 
  Country: None (occurrence: None)
  Receive Date: 20050211
  Receipt Date: 20030929
  Transmission Date: 20050727
  Serious: Yes (Hospitalization)
  Sender: FDA-Public Use
  Company Number: 05-021

PATIENT
  Age: 66 Year
  Sex: Female

DRUGS (1)
  1. CAPOTEN [Suspect]
     Indication: HYPERTENSION

REACTIONS (4)
  - BLOOD SODIUM DECREASED [None]
  - DIARRHOEA [None]
  - RENAL FAILURE ACUTE [None]
  - VOMITING [None]
